FAERS Safety Report 5879982-7 (Version None)
Quarter: 2008Q3

REPORT INFORMATION
  Report Type: 
  Country: None (occurrence: None)
  Receive Date: 20080912
  Receipt Date: 20080905
  Transmission Date: 20090109
  Serious: Yes (Other)
  Sender: FDA-Public Use
  Company Number: GB-ALLERGAN-0811110US

PATIENT
  Sex: Male

DRUGS (1)
  1. EXOCIN [Suspect]
     Indication: EYE OPERATION COMPLICATION
     Dosage: UNK, UNK
     Route: 047
     Dates: start: 20060101

REACTIONS (2)
  - DIARRHOEA [None]
  - MALABSORPTION [None]
